FAERS Safety Report 5131662-1 (Version None)
Quarter: 2006Q4

REPORT INFORMATION
  Report Type: 
  Country: None (occurrence: None)
  Receive Date: 20061020
  Receipt Date: 20060824
  Transmission Date: 20070319
  Serious: Yes (Death, Life-Threatening, Hospitalization)
  Sender: FDA-Public Use
  Company Number: JP-BRISTOL-MYERS SQUIBB COMPANY-13488697

PATIENT
  Age: 41 Year
  Sex: Female

DRUGS (3)
  1. MAXIPIME [Suspect]
     Indication: BACTERIAL INFECTION
     Route: 041
     Dates: start: 20060818, end: 20060823
  2. MIXID-L [Concomitant]
     Route: 042
     Dates: start: 20060817, end: 20060831
  3. TARGOCID [Concomitant]
     Route: 042
     Dates: start: 20060814, end: 20060821

REACTIONS (2)
  - CONVULSION [None]
  - INFECTION [None]
